FAERS Safety Report 20375005 (Version 1)
Quarter: 2022Q1

REPORT INFORMATION
  Report Type: Report from Study
  Country: US (occurrence: US)
  Receive Date: 20220125
  Receipt Date: 20220125
  Transmission Date: 20220424
  Serious: Yes (Other)
  Sender: FDA-Public Use
  Company Number: US-UCBSA-2022002224

PATIENT
  Age: 72 Year
  Sex: Male

DRUGS (1)
  1. CERTOLIZUMAB PEGOL [Suspect]
     Active Substance: CERTOLIZUMAB PEGOL
     Indication: Psoriatic arthropathy
     Dosage: 400 MILLIGRAM, EV 4 WEEKS
     Dates: start: 20211123

REACTIONS (3)
  - Diverticulitis [Recovering/Resolving]
  - Weight bearing difficulty [Recovering/Resolving]
  - Muscle spasms [Recovering/Resolving]

NARRATIVE: CASE EVENT DATE: 20211222
